FAERS Safety Report 12820400 (Version 1)
Quarter: 2016Q4

REPORT INFORMATION
  Report Type: Report from Study
  Country: US (occurrence: US)
  Receive Date: 20161006
  Receipt Date: 20161006
  Transmission Date: 20170207
  Serious: No
  Sender: FDA-Public Use
  Company Number: US-AMGEN-USASL2015077848

PATIENT
  Sex: Male

DRUGS (2)
  1. PROLIA [Suspect]
     Active Substance: DENOSUMAB
     Indication: PRODUCT USED FOR UNKNOWN INDICATION
     Dosage: UNK
     Route: 065
     Dates: start: 201502
  2. CRESTOR [Concomitant]
     Active Substance: ROSUVASTATIN CALCIUM
     Route: 065

REACTIONS (10)
  - Exostosis [Unknown]
  - Arthropathy [Unknown]
  - Musculoskeletal pain [Recovering/Resolving]
  - Musculoskeletal discomfort [Unknown]
  - Pain [Unknown]
  - Adverse drug reaction [Unknown]
  - Arthralgia [Recovering/Resolving]
  - Myalgia [Recovering/Resolving]
  - Gait disturbance [Unknown]
  - Muscle disorder [Unknown]

NARRATIVE: CASE EVENT DATE: 2015
